FAERS Safety Report 9932682 (Version 1)
Quarter: 2014Q1

REPORT INFORMATION
  Report Type: Spontaneous
  Country: US (occurrence: US)
  Receive Date: 20140228
  Receipt Date: 20140228
  Transmission Date: 20141002
  Serious: No
  Sender: FDA-Public Use
  Company Number: US-GLAXOSMITHKLINE-A1025222A

PATIENT
  Age: 62 Year
  Sex: Male

DRUGS (14)
  1. LAMOTRIGINE [Suspect]
     Indication: BIPOLAR DISORDER
     Dosage: 100MG PER DAY
     Route: 048
     Dates: start: 201302
  2. CARVEDILOL [Concomitant]
  3. VERAPAMIL [Concomitant]
  4. AMLODIPINE [Concomitant]
  5. DIGOXIN [Concomitant]
  6. LOSARTAN [Concomitant]
  7. PRAVASTATIN [Concomitant]
  8. CYMBALTA [Concomitant]
  9. VITAMIN B COMPLEX [Concomitant]
  10. WELCHOL [Concomitant]
  11. VITAMIN D [Concomitant]
  12. OMEPRAZOLE [Concomitant]
  13. WELLBUTRIN [Concomitant]
  14. FLOMAX [Concomitant]

REACTIONS (4)
  - Alopecia [Not Recovered/Not Resolved]
  - Erectile dysfunction [Unknown]
  - Urine flow decreased [Unknown]
  - Contusion [Unknown]
